FAERS Safety Report 4405576-6 (Version None)
Quarter: 2004Q3

REPORT INFORMATION
  Report Type: 
  Country: None (occurrence: None)
  Receive Date: 20040723
  Receipt Date: 20031003
  Transmission Date: 20050211
  Serious: No
  Sender: FDA-Public Use
  Company Number: US-GLAXOSMITHKLINE-A0428731A

PATIENT
  Age: 65 Year
  Sex: Female

DRUGS (6)
  1. AVANDIA [Suspect]
     Dosage: 1MG TWICE PER DAY
     Route: 048
     Dates: start: 20030901
  2. VIACTIV [Suspect]
     Indication: ILL-DEFINED DISORDER
     Route: 065
  3. NORVASC [Concomitant]
  4. GLYBURIDE [Concomitant]
  5. SYNTHROID [Concomitant]
  6. ZOCOR [Concomitant]

REACTIONS (3)
  - ABDOMINAL DISTENSION [None]
  - CONSTIPATION [None]
  - SWELLING [None]
